FAERS Safety Report 12645189 (Version 1)
Quarter: 2016Q3

REPORT INFORMATION
  Report Type: Spontaneous
  Country: US (occurrence: US)
  Receive Date: 20160811
  Receipt Date: 20160811
  Transmission Date: 20161109
  Serious: Yes (Hospitalization)
  Sender: FDA-Public Use
  Company Number: US-PFIZER INC-2016380382

PATIENT
  Age: 55 Year
  Sex: Male
  Weight: 74 kg

DRUGS (9)
  1. LIDOCAINE HCL [Suspect]
     Active Substance: LIDOCAINE HYDROCHLORIDE
     Dosage: 2 ML OF 5% LIDOCAINE WITH 7.5% DEXTROSE
     Route: 037
  2. EPINEPHRINE. [Concomitant]
     Active Substance: EPINEPHRINE
     Indication: SPINAL ANAESTHESIA
     Dosage: 0.2 ML, UNK, (1:1000)
     Route: 037
  3. MIDAZOLAM [Concomitant]
     Active Substance: MIDAZOLAM\MIDAZOLAM HYDROCHLORIDE
     Indication: SEDATION
     Dosage: 6 MG, UNK
     Route: 042
  4. LIDOCAINE HCL [Suspect]
     Active Substance: LIDOCAINE HYDROCHLORIDE
     Indication: SPINAL ANAESTHESIA
     Dosage: 1 %, UNK, (APPROXIMATELY 3 ML)
     Route: 037
  5. LIDOCAINE HCL [Suspect]
     Active Substance: LIDOCAINE HYDROCHLORIDE
     Dosage: 2 %, UNK
     Route: 037
  6. FAMOTIDINE. [Concomitant]
     Active Substance: FAMOTIDINE
     Indication: GASTRIC ULCER
     Dosage: UNK
  7. FENTANYL. [Concomitant]
     Active Substance: FENTANYL
     Indication: SEDATION
     Dosage: 50 UG, UNK
     Route: 042
  8. EPHEDRINE. [Concomitant]
     Active Substance: EPHEDRINE
     Indication: BLOOD PRESSURE DECREASED
     Dosage: 5 MG, UNK
     Route: 042
  9. DEXTROSE. [Concomitant]
     Active Substance: DEXTROSE
     Indication: SPINAL ANAESTHESIA
     Dosage: 7.5 %, UNK
     Route: 037

REACTIONS (1)
  - Radicular pain [Recovered/Resolved]
